FAERS Safety Report 9264730 (Version 1)
Quarter: 2013Q2

REPORT INFORMATION
  Report Type: Spontaneous
  Country: JP (occurrence: JP)
  Receive Date: 20130501
  Receipt Date: 20130501
  Transmission Date: 20140414
  Serious: Yes (Hospitalization)
  Sender: FDA-Public Use
  Company Number: JP-ROCHE-1218423

PATIENT
  Age: 50 Year
  Sex: Female

DRUGS (2)
  1. HERCEPTIN [Suspect]
     Indication: BREAST CANCER
     Dosage: DOSAGE IS UNCERTAIN.
     Route: 041
     Dates: start: 201209, end: 2012
  2. HERCEPTIN [Suspect]
     Indication: BREAST CANCER
     Dosage: DOSAGE IS UNCERTAIN.
     Route: 041
     Dates: start: 201210

REACTIONS (9)
  - Herpes zoster [Unknown]
  - Diarrhoea [Unknown]
  - Pruritus [Unknown]
  - Dermatitis [Unknown]
  - Injection site pruritus [Unknown]
  - Acne [Unknown]
  - Skin wrinkling [Unknown]
  - Onychoclasis [Unknown]
  - Hangnail [Unknown]
